FAERS Safety Report 5024025-0 (Version None)
Quarter: 2006Q2

REPORT INFORMATION
  Report Type: 
  Country: None (occurrence: None)
  Receive Date: 20060607
  Receipt Date: 20060525
  Transmission Date: 20061013
  Serious: Yes (Hospitalization, Other)
  Sender: FDA-Public Use
  Company Number: HQWYE789219MAY05

PATIENT
  Age: 76 Year
  Sex: Male
  Weight: 73.6 kg

DRUGS (31)
  1. RAPAMUNE [Suspect]
     Indication: PROPHYLAXIS AGAINST TRANSPLANT REJECTION
     Dosage: 8 MG 1X PER 1 DAY, ORAL; 9 MG 1X PER 1 DAY, ORAL
     Route: 048
     Dates: start: 20050131, end: 20050501
  2. RAPAMUNE [Suspect]
     Indication: PROPHYLAXIS AGAINST TRANSPLANT REJECTION
     Dosage: 8 MG 1X PER 1 DAY, ORAL; 9 MG 1X PER 1 DAY, ORAL
     Route: 048
     Dates: start: 20050501
  3. RAPAMUNE [Suspect]
  4. RAPAMUNE [Suspect]
  5. RAPAMUNE [Suspect]
  6. PREDNISONE TAB [Suspect]
     Indication: PROPHYLAXIS AGAINST TRANSPLANT REJECTION
     Dosage: 5 MG 1X PER 1 DAY, ORAL
     Route: 048
  7. PROGRAF [Suspect]
     Indication: PROPHYLAXIS AGAINST TRANSPLANT REJECTION
     Dosage: 2 MG 2X PER 1 DAY, ORAL
     Route: 048
  8. ZENAPAX [Suspect]
     Indication: PROPHYLAXIS AGAINST TRANSPLANT REJECTION
     Dosage: ORAL
     Route: 048
  9. LANTUS [Concomitant]
  10. NOVOLOG [Concomitant]
  11. FLOMAX [Concomitant]
  12. FLONASE [Concomitant]
  13. COMBIVENT [Concomitant]
  14. ALBUTEROL [Concomitant]
  15. FLOVENT [Concomitant]
  16. PROCRIT [Concomitant]
  17. PRAVACHOL [Concomitant]
  18. NEXIUM [Concomitant]
  19. BACTRIM [Concomitant]
  20. NORVASC [Concomitant]
  21. ATENOLOL [Concomitant]
  22. CIPRO [Concomitant]
  23. PANCREASE (PANCRELIPASE) [Concomitant]
  24. MAGNESIUM OXIDE (MAGNESIUM OXIDE) [Concomitant]
  25. SODIUM BICARBONATE IN PLASTIC CONTAINER [Concomitant]
  26. DIGOXIN [Concomitant]
  27. BUMEX [Concomitant]
  28. THERAGRAN-M (MINERALS NOS/VITAMINS NOS) [Concomitant]
  29. COUMADIN [Concomitant]
  30. DOXAZOSIN (DOXAZOSIN) [Concomitant]
  31. PROTOONIX (PANTOPRAZOLE) [Concomitant]

REACTIONS (14)
  - BLOOD BICARBONATE DECREASED [None]
  - BLOOD CHLORIDE DECREASED [None]
  - BLOOD GLUCOSE INCREASED [None]
  - BLOOD PHOSPHORUS INCREASED [None]
  - DEEP VEIN THROMBOSIS [None]
  - DEHYDRATION [None]
  - DRUG INEFFECTIVE [None]
  - HYPOVOLAEMIA [None]
  - KIDNEY FIBROSIS [None]
  - KIDNEY TRANSPLANT REJECTION [None]
  - OEDEMA PERIPHERAL [None]
  - PROTHROMBIN TIME PROLONGED [None]
  - PYELONEPHRITIS [None]
  - UNEVALUABLE EVENT [None]
